FAERS Safety Report 15197178 (Version 1)
Quarter: 2018Q3

REPORT INFORMATION
  Report Type: Spontaneous
  Country: DE (occurrence: DE)
  Receive Date: 20180725
  Receipt Date: 20180725
  Transmission Date: 20181010
  Serious: Yes (Death, Hospitalization, Other)
  Sender: FDA-Public Use
  Company Number: DE-TEVA-2018-DE-927798

PATIENT
  Age: 76 Year
  Sex: Male
  Weight: 88 kg

DRUGS (53)
  1. FLUOROURACIL. [Suspect]
     Active Substance: FLUOROURACIL
     Dates: start: 20140402, end: 20140403
  2. FOLINIC ACID [Suspect]
     Active Substance: LEUCOVORIN
     Dates: start: 20140224, end: 20140224
  3. FOLINIC ACID [Suspect]
     Active Substance: LEUCOVORIN
     Dates: start: 20130203, end: 20130203
  4. IRINOTECAN [Suspect]
     Active Substance: IRINOTECAN
     Dosage: DAILY DOSE: 75 MG MILLGRAM(S) EVERY WEEKS
     Dates: start: 20140217, end: 20140217
  5. IRINOTECAN [Suspect]
     Active Substance: IRINOTECAN
     Dates: start: 20131014, end: 20131014
  6. IRINOTECAN [Suspect]
     Active Substance: IRINOTECAN
     Dates: start: 20140203, end: 20140203
  7. BISO LICH [Concomitant]
     Active Substance: BISOPROLOL
     Indication: HYPERTENSION
     Route: 048
     Dates: end: 1999
  8. FLUOROURACIL. [Suspect]
     Active Substance: FLUOROURACIL
     Dates: start: 20140217, end: 20140218
  9. FOLINIC ACID [Suspect]
     Active Substance: LEUCOVORIN
     Dates: start: 20130127, end: 20130127
  10. FOLINIC ACID [Suspect]
     Active Substance: LEUCOVORIN
     Dates: start: 20131210, end: 20131210
  11. GLIMEPIRIDE. [Concomitant]
     Active Substance: GLIMEPIRIDE
     Indication: DIABETES MELLITUS
     Route: 048
     Dates: start: 1999
  12. FOLINIC ACID [Suspect]
     Active Substance: LEUCOVORIN
     Dates: start: 20130917, end: 20130917
  13. IRINOTECAN [Suspect]
     Active Substance: IRINOTECAN
     Dates: start: 20140224, end: 20140224
  14. IRINOTECAN [Suspect]
     Active Substance: IRINOTECAN
     Dates: start: 20131210, end: 20131210
  15. IRINOTECAN [Suspect]
     Active Substance: IRINOTECAN
     Dates: start: 20140409, end: 20140409
  16. FLUOROURACIL. [Suspect]
     Active Substance: FLUOROURACIL
     Dosage: DAILY DOSE: 1850 MG MILLGRAM(S) EVERY WEEKS
     Dates: start: 20140409, end: 20140410
  17. FLUOROURACIL. [Suspect]
     Active Substance: FLUOROURACIL
     Dates: start: 20131112, end: 20131113
  18. FOLINIC ACID [Suspect]
     Active Substance: LEUCOVORIN
     Dates: start: 20131112, end: 20131112
  19. IRINOTECAN [Suspect]
     Active Substance: IRINOTECAN
     Dates: start: 20130924, end: 20130924
  20. SEVIKAR [Concomitant]
     Active Substance: AMLODIPINE BESYLATE\OLMESARTAN MEDOXOMIL
     Indication: HYPERTENSION
     Route: 048
     Dates: start: 1999
  21. FLUOROURACIL. [Suspect]
     Active Substance: FLUOROURACIL
     Dates: start: 20131001, end: 20131002
  22. FLUOROURACIL. [Suspect]
     Active Substance: FLUOROURACIL
     Dates: start: 20140224, end: 20140225
  23. FLUOROURACIL. [Suspect]
     Active Substance: FLUOROURACIL
     Route: 065
     Dates: start: 20130717, end: 20131211
  24. FOLINIC ACID [Suspect]
     Active Substance: LEUCOVORIN
     Dates: start: 20131014, end: 20131014
  25. FOLINIC ACID [Suspect]
     Active Substance: LEUCOVORIN
     Dates: start: 20140326, end: 20140326
  26. IRINOTECAN [Suspect]
     Active Substance: IRINOTECAN
     Dates: start: 20140409, end: 20140409
  27. IRINOTECAN [Suspect]
     Active Substance: IRINOTECAN
     Dates: start: 20131112, end: 20131112
  28. IRINOTECAN [Suspect]
     Active Substance: IRINOTECAN
     Dates: start: 20131203, end: 20131203
  29. AVASTIN [Suspect]
     Active Substance: BEVACIZUMAB
     Dates: start: 20131001, end: 20131001
  30. AVASTIN [Suspect]
     Active Substance: BEVACIZUMAB
     Dates: start: 20140416, end: 20140416
  31. FLUOROURACIL. [Suspect]
     Active Substance: FLUOROURACIL
     Dates: start: 20131105, end: 20131113
  32. FLUOROURACIL. [Suspect]
     Active Substance: FLUOROURACIL
     Dates: start: 20140127, end: 20140128
  33. FOLINIC ACID [Suspect]
     Active Substance: LEUCOVORIN
     Dates: start: 20131105, end: 20131105
  34. FOLINIC ACID [Suspect]
     Active Substance: LEUCOVORIN
     Dates: start: 20140120, end: 20140120
  35. IRINOTECAN [Suspect]
     Active Substance: IRINOTECAN
     Dates: start: 20140210, end: 20140210
  36. IRINOTECAN [Suspect]
     Active Substance: IRINOTECAN
     Dates: start: 20140416, end: 20140416
  37. IRINOTECAN [Suspect]
     Active Substance: IRINOTECAN
     Dates: start: 20131007, end: 20131007
  38. IRINOTECAN [Suspect]
     Active Substance: IRINOTECAN
     Dates: start: 20131126, end: 20131126
  39. ALOXI [Concomitant]
     Active Substance: PALONOSETRON HYDROCHLORIDE
     Indication: VOMITING
     Dosage: DAILY DOSE: 500 ?G MICROGRAM(S) EVERY DAYS
     Route: 065
     Dates: start: 20140417, end: 20140417
  40. SIMVASTATIN. [Concomitant]
     Active Substance: SIMVASTATIN
     Indication: HYPERLIPIDAEMIA
     Route: 048
     Dates: start: 1999
  41. HYDROCHLOROTHIAZIDE. [Concomitant]
     Active Substance: HYDROCHLOROTHIAZIDE
     Indication: HYPERTENSION
     Route: 048
     Dates: start: 1999
  42. FOLINIC ACID [Suspect]
     Active Substance: LEUCOVORIN
     Dosage: DAILY DOSE: 800 MG MILLGRAM(S) EVERY WEEKS
     Dates: start: 20140402, end: 20140402
  43. FOLINIC ACID [Suspect]
     Active Substance: LEUCOVORIN
     Dates: start: 20131001, end: 20131001
  44. IRINOTECAN [Suspect]
     Active Substance: IRINOTECAN
     Dates: start: 20130917, end: 20130917
  45. IRINOTECAN [Suspect]
     Active Substance: IRINOTECAN
     Dates: start: 20131119, end: 20131119
  46. FLUOROURACIL. [Suspect]
     Active Substance: FLUOROURACIL
     Dates: start: 20140326, end: 20140327
  47. FLUOROURACIL. [Suspect]
     Active Substance: FLUOROURACIL
     Dates: start: 20131126, end: 20131127
  48. FOLINIC ACID [Suspect]
     Active Substance: LEUCOVORIN
     Dates: start: 20140319, end: 20140319
  49. FOLINIC ACID [Suspect]
     Active Substance: LEUCOVORIN
     Dates: start: 20131007, end: 20131007
  50. IRINOTECAN [Suspect]
     Active Substance: IRINOTECAN
     Dates: start: 20140120, end: 20140120
  51. IRINOTECAN [Suspect]
     Active Substance: IRINOTECAN
     Dates: start: 20140319, end: 20140319
  52. AVASTIN [Suspect]
     Active Substance: BEVACIZUMAB
     Dosage: DAILY DOSE: 415 MG MILLGRAM(S) EVERY 2 WEEKS
     Dates: start: 20131203, end: 20131203
  53. BERLINSULIN H 30/70 [Concomitant]
     Indication: DIABETES MELLITUS
     Dosage: 30/70
     Route: 058
     Dates: start: 1999

REACTIONS (5)
  - Diarrhoea [Recovered/Resolved]
  - Abdominal pain upper [Fatal]
  - Malignant neoplasm progression [Fatal]
  - Anaemia [Recovered/Resolved]
  - Vomiting [Recovered/Resolved]

NARRATIVE: CASE EVENT DATE: 20131014
